FAERS Safety Report 9045378 (Version 1)
Quarter: 2013Q1

REPORT INFORMATION
  Report Type: Report from Study
  Country: US (occurrence: US)
  Receive Date: 20130131
  Receipt Date: 20130131
  Transmission Date: 20140127
  Serious: No
  Sender: FDA-Public Use
  Company Number: US-ABBOTT-12P-163-1004475-00

PATIENT
  Age: 58 None
  Sex: Female
  Weight: 104.42 kg

DRUGS (5)
  1. HUMIRA [Suspect]
     Indication: RHEUMATOID ARTHRITIS
     Route: 058
     Dates: start: 20121010
  2. HYDROCODONE [Concomitant]
     Indication: RHEUMATOID ARTHRITIS
     Dosage: 5/32MG DAILY
  3. SYMAX DUOTAB [Concomitant]
     Indication: ABDOMINAL RIGIDITY
     Dates: start: 2011
  4. FLORASTOR PROBIOTICS [Concomitant]
     Indication: GASTRIC DISORDER
     Dates: start: 2011
  5. FLORASTOR PROBIOTICS [Concomitant]
     Indication: FAECAL INCONTINENCE

REACTIONS (5)
  - Frequent bowel movements [Not Recovered/Not Resolved]
  - Abdominal pain [Not Recovered/Not Resolved]
  - Diverticulum [Not Recovered/Not Resolved]
  - Large intestine polyp [Recovered/Resolved]
  - Unevaluable event [Not Recovered/Not Resolved]
